FAERS Safety Report 18448847 (Version 1)
Quarter: 2020Q4

REPORT INFORMATION
  Report Type: Spontaneous
  Country: JP (occurrence: JP)
  Receive Date: 20201030
  Receipt Date: 20201030
  Transmission Date: 20210114
  Serious: Yes (Hospitalization, Other)
  Sender: FDA-Public Use
  Company Number: JP-GILEAD-2020-0501528

PATIENT
  Age: 80 Year
  Sex: Female

DRUGS (1)
  1. VEMLIDY [Suspect]
     Active Substance: TENOFOVIR ALAFENAMIDE FUMARATE
     Indication: HEPATITIS B
     Dosage: 1 DOSAGE FORM, QOD
     Route: 048
     Dates: start: 201805

REACTIONS (3)
  - Thrombotic cerebral infarction [Not Recovered/Not Resolved]
  - Off label use [Not Recovered/Not Resolved]
  - Arterial thrombosis [Not Recovered/Not Resolved]

NARRATIVE: CASE EVENT DATE: 201805
